FAERS Safety Report 12718883 (Version 1)
Quarter: 2016Q3

REPORT INFORMATION
  Report Type: Spontaneous
  Country: US (occurrence: US)
  Receive Date: 20160906
  Receipt Date: 20160906
  Transmission Date: 20161109
  Serious: Yes (Other)
  Sender: FDA-Public Use
  Company Number: US-GLAXOSMITHKLINE-US2016GSK127044

PATIENT
  Sex: Female

DRUGS (1)
  1. CARVEDILOL. [Suspect]
     Active Substance: CARVEDILOL
     Indication: BLOOD PRESSURE ABNORMAL
     Dosage: UNK, BID

REACTIONS (7)
  - Vascular stent insertion [Unknown]
  - Acute myocardial infarction [Unknown]
  - Hypotension [Unknown]
  - Ill-defined disorder [Unknown]
  - Device failure [Unknown]
  - Coronary artery bypass [Unknown]
  - Blood pressure fluctuation [Unknown]
